FAERS Safety Report 4766738-1 (Version None)
Quarter: 2005Q3

REPORT INFORMATION
  Report Type: 
  Country: None (occurrence: None)
  Receive Date: 20050912
  Receipt Date: 20050826
  Transmission Date: 20060218
  Serious: Yes (Death, Other)
  Sender: FDA-Public Use
  Company Number: A-US2005-10508

PATIENT
  Age: 6 Hour
  Sex: 0

DRUGS (1)
  1. TRACLEER [Suspect]
     Indication: TRANSMISSION OF DRUG VIA SEMEN

REACTIONS (3)
  - CONGENITAL CARDIOVASCULAR ANOMALY [None]
  - HYDROPS FOETALIS [None]
  - TRANSMISSION OF DRUG VIA SEMEN [None]
